FAERS Safety Report 7579677-8 (Version None)
Quarter: 2011Q2

REPORT INFORMATION
  Report Type: 
  Country: None (occurrence: None)
  Receive Date: 20110629
  Receipt Date: 20110624
  Transmission Date: 20111010
  Serious: Yes (Death, Hospitalization)
  Sender: FDA-Public Use
  Company Number: US-AMGEN-USASP2011029530

PATIENT
  Sex: Male

DRUGS (8)
  1. GLYBURIDE [Concomitant]
  2. CORTICOSTEROIDS [Concomitant]
     Dosage: UNK
     Dates: start: 20080108
  3. LIPITOR [Concomitant]
  4. PREDNISONE [Concomitant]
  5. MAGNESIUM [Concomitant]
  6. LOVENOX [Concomitant]
  7. NPLATE [Suspect]
     Indication: IDIOPATHIC THROMBOCYTOPENIC PURPURA
     Dosage: 2 A?G/KG, UNK
     Dates: start: 20090522, end: 20110329
  8. TOPROL-XL [Concomitant]

REACTIONS (1)
  - NEOPLASM MALIGNANT [None]
